FAERS Safety Report 9568272 (Version 1)
Quarter: 2013Q3

REPORT INFORMATION
  Report Type: Spontaneous
  Country: US (occurrence: US)
  Receive Date: 20130930
  Receipt Date: 20130930
  Transmission Date: 20140515
  Serious: No
  Sender: FDA-Public Use
  Company Number: US-AMGEN-USASP2013052890

PATIENT
  Age: 42 Year
  Sex: Female

DRUGS (3)
  1. ENBREL [Suspect]
     Indication: PSORIATIC ARTHROPATHY
     Dosage: 50 MG, QWK
     Route: 065
     Dates: start: 2002
  2. HUMIRA [Concomitant]
     Dosage: UNK
  3. SIMPONI [Concomitant]
     Dosage: UNK

REACTIONS (2)
  - Therapeutic response decreased [Recovered/Resolved]
  - Memory impairment [Unknown]
